FAERS Safety Report 6132766-7 (Version None)
Quarter: 2009Q1

REPORT INFORMATION
  Report Type: 
  Country: None (occurrence: None)
  Receive Date: 20090326
  Receipt Date: 20090319
  Transmission Date: 20090719
  Serious: Yes (Other)
  Sender: FDA-Public Use
  Company Number: GB-TEVA-188688ISR

PATIENT
  Sex: Male
  Weight: 103 kg

DRUGS (1)
  1. RAMIPRIL [Suspect]
     Route: 048

REACTIONS (1)
  - BRADYCARDIA [None]
